FAERS Safety Report 21356352 (Version 1)
Quarter: 2022Q3

REPORT INFORMATION
  Report Type: Spontaneous
  Country: US (occurrence: US)
  Receive Date: 20220920
  Receipt Date: 20220920
  Transmission Date: 20221027
  Serious: No
  Sender: FDA-Public Use
  Company Number: US-JNJFOC-20220903275

PATIENT
  Age: 64 Year
  Sex: Male

DRUGS (2)
  1. IMBRUVICA [Suspect]
     Active Substance: IBRUTINIB
     Indication: Chronic lymphocytic leukaemia
     Route: 048
  2. HEDERA HELIX [Suspect]
     Active Substance: HEDERA HELIX FLOWERING TWIG\HERBALS
     Indication: Product used for unknown indication
     Route: 065

REACTIONS (2)
  - Dermatitis contact [Unknown]
  - Herpes zoster [Unknown]
